FAERS Safety Report 7456290-4 (Version None)
Quarter: 2011Q2

REPORT INFORMATION
  Report Type: 
  Country: None (occurrence: None)
  Receive Date: 20110503
  Receipt Date: 20110418
  Transmission Date: 20111010
  Serious: Yes (Other)
  Sender: FDA-Public Use
  Company Number: US-BAYER-201029628NA

PATIENT
  Age: 34 Year
  Sex: Female
  Weight: 56.689 kg

DRUGS (8)
  1. OCUFLOX [Concomitant]
     Indication: CONJUNCTIVITIS
     Dosage: 0.3 %, UNK
  2. YAZ [Suspect]
     Indication: CONTRACEPTION
     Dosage: UNK UNK, UNK
     Route: 048
     Dates: start: 20071101, end: 20080501
  3. NECON [Concomitant]
     Dosage: UNK
     Route: 048
     Dates: start: 20080707
  4. PROTONIX [Concomitant]
     Route: 048
  5. MORPHINE [Concomitant]
     Dosage: 4 MG, ONCE
     Route: 042
  6. LORTAB [Concomitant]
     Route: 048
  7. PRENATAL [VIT C,B5,B12,D2,B3,B6,RETINOL PALMIT,B2,B1 MONONITR] [Concomitant]
     Dosage: UNK
     Route: 048
  8. ALLEGRA [Concomitant]
     Indication: URTICARIA
     Dosage: 60 MG, BID
     Route: 048

REACTIONS (2)
  - GALLBLADDER DISORDER [None]
  - CHOLECYSTITIS CHRONIC [None]
